FAERS Safety Report 4539780-3 (Version None)
Quarter: 2004Q4

REPORT INFORMATION
  Report Type: 
  Country: None (occurrence: None)
  Receive Date: 20041222
  Receipt Date: 20041209
  Transmission Date: 20050328
  Serious: Yes (Other)
  Sender: FDA-Public Use
  Company Number: 2004112108

PATIENT
  Sex: Female
  Weight: 71.2147 kg

DRUGS (1)
  1. ZOLOFT [Suspect]
     Indication: DEPRESSION
     Dosage: 50 MG (50 MG, 1 IN 1 D), ORAL
     Route: 048

REACTIONS (5)
  - BLOOD HOMOCYSTEINE INCREASED [None]
  - COELIAC DISEASE [None]
  - ENDOMETRIAL CANCER [None]
  - NEUTROPHIL COUNT INCREASED [None]
  - WEIGHT DECREASED [None]
